FAERS Safety Report 9128824 (Version 1)
Quarter: 2013Q1

REPORT INFORMATION
  Report Type: Spontaneous
  Country: FR (occurrence: FR)
  Receive Date: 20130228
  Receipt Date: 20130228
  Transmission Date: 20140127
  Serious: Yes (Congenital Anomaly)
  Sender: FDA-Public Use
  Company Number: FR-SANOFI-AVENTIS-2013SA017055

PATIENT
  Sex: Male

DRUGS (4)
  1. LOVENOX [Suspect]
     Indication: MATERNAL EXPOSURE TIMING UNSPECIFIED
     Route: 064
     Dates: start: 20120326, end: 20120812
  2. LOVENOX [Suspect]
     Indication: MATERNAL EXPOSURE TIMING UNSPECIFIED
     Route: 064
     Dates: start: 20121111, end: 20121124
  3. PREVISCAN [Suspect]
     Indication: MATERNAL EXPOSURE TIMING UNSPECIFIED
     Route: 064
     Dates: end: 20120326
  4. INNOHEP [Suspect]
     Indication: MATERNAL EXPOSURE TIMING UNSPECIFIED
     Route: 064
     Dates: start: 20120812, end: 20121111

REACTIONS (2)
  - Bronchogenic cyst [Recovered/Resolved]
  - Exposure during pregnancy [Unknown]
